FAERS Safety Report 22623854 (Version 8)
Quarter: 2023Q4

REPORT INFORMATION
  Report Type: Spontaneous
  Country: US (occurrence: US)
  Receive Date: 20230621
  Receipt Date: 20231206
  Transmission Date: 20240110
  Serious: Yes (Other)
  Sender: FDA-Public Use
  Company Number: US-GLAXOSMITHKLINE-US2023AMR085737

PATIENT
  Sex: Female

DRUGS (6)
  1. ZEJULA [Suspect]
     Active Substance: NIRAPARIB
     Indication: Ovarian cancer
     Dosage: 100 MG, QD
  2. ZEJULA [Suspect]
     Active Substance: NIRAPARIB
     Dosage: 200 MG, QD
     Dates: start: 20230616
  3. ZEJULA [Suspect]
     Active Substance: NIRAPARIB
     Dosage: 300 MG, QD
  4. ZEJULA [Suspect]
     Active Substance: NIRAPARIB
     Dosage: 2 DF, QD
  5. ZEJULA [Suspect]
     Active Substance: NIRAPARIB
     Indication: Ovarian cancer
     Dosage: 200 MG, QD
  6. MIRABEGRON [Concomitant]
     Active Substance: MIRABEGRON
     Indication: Pollakiuria
     Dosage: UNK

REACTIONS (11)
  - Neutropenia [Unknown]
  - Sleep disorder [Unknown]
  - Constipation [Recovering/Resolving]
  - Blood pressure increased [Recovering/Resolving]
  - Pollakiuria [Unknown]
  - White blood cell count decreased [Unknown]
  - Fatigue [Unknown]
  - Photosensitivity reaction [Unknown]
  - Rash pruritic [Unknown]
  - Rash erythematous [Unknown]
  - Positron emission tomogram abnormal [Unknown]
